FAERS Safety Report 6154905-4 (Version None)
Quarter: 2009Q2

REPORT INFORMATION
  Report Type: 
  Country: None (occurrence: None)
  Receive Date: 20090414
  Receipt Date: 20090409
  Transmission Date: 20091009
  Serious: No
  Sender: FDA-Public Use
  Company Number: US-B.I. PHARMACEUTICALS,INC./RIDGEFIELD-2009-BP-04460BP

PATIENT
  Sex: Female

DRUGS (3)
  1. SPIRIVA [Suspect]
     Indication: ASTHMA
     Dosage: 18MCG
     Route: 055
     Dates: start: 20090402, end: 20090404
  2. FOSAMAX [Concomitant]
     Indication: OSTEOPENIA
     Route: 048
     Dates: start: 20050101
  3. GERAVIRA HERBAL [Concomitant]
     Indication: PULMONARY FUNCTION TEST
     Route: 048
     Dates: start: 20040101

REACTIONS (5)
  - DIZZINESS [None]
  - FEELING COLD [None]
  - FEELING HOT [None]
  - MUSCLE SPASMS [None]
  - PARAESTHESIA [None]
